FAERS Safety Report 6481165-7 (Version None)
Quarter: 2009Q4

REPORT INFORMATION
  Report Type: 
  Country: None (occurrence: None)
  Receive Date: 20091203
  Receipt Date: 20091120
  Transmission Date: 20100525
  Serious: Yes (Hospitalization)
  Sender: FDA-Public Use
  Company Number: POMP-1000788

PATIENT
  Age: 21 Year
  Sex: Male
  Weight: 72.5 kg

DRUGS (4)
  1. MYOZYME [Suspect]
     Indication: GLYCOGEN STORAGE DISEASE TYPE II
     Dosage: 20 MG/KG, Q2W
     Dates: start: 20060105
  2. IMODIUM [Concomitant]
  3. VITAMIN D [Concomitant]
  4. TYLENOL PM (DIPHENHYDRAMINE, PARACETAMOL) [Concomitant]

REACTIONS (1)
  - H1N1 INFLUENZA [None]
